FAERS Safety Report 25213389 (Version 1)
Quarter: 2025Q2

REPORT INFORMATION
  Report Type: Spontaneous
  Country: SE (occurrence: SE)
  Receive Date: 20250418
  Receipt Date: 20250418
  Transmission Date: 20250716
  Serious: Yes (Death, Life-Threatening, Hospitalization)
  Sender: MYLAN
  Company Number: None

PATIENT
  Age: 69 Year
  Sex: Female

DRUGS (16)
  1. ATORVASTATIN [Suspect]
     Active Substance: ATORVASTATIN
     Indication: Lipids increased
     Dosage: 80 MILLIGRAM, QD
     Dates: start: 20230703, end: 20250214
  2. BISOPROLOL [Concomitant]
     Active Substance: BISOPROLOL
     Dosage: 2.5 MILLIGRAM, QD
     Dates: start: 20230720
  3. PARAFLEX [Concomitant]
     Active Substance: CHLORZOXAZONE
  4. Benferol [Concomitant]
     Dosage: 1 DOSAGE FORM, QD
     Dates: start: 20190522
  5. OMEPRAZOLE [Concomitant]
     Active Substance: OMEPRAZOLE
  6. FUROSEMIDE [Concomitant]
     Active Substance: FUROSEMIDE
  7. ASPIRIN [Concomitant]
     Active Substance: ASPIRIN
     Dosage: 75 MILLIGRAM, QD
     Dates: start: 20230703
  8. MOVICOL [Concomitant]
     Active Substance: POLYETHYLENE GLYCOL 3350\POTASSIUM CHLORIDE\SODIUM BICARBONATE\SODIUM CHLORIDE
  9. UREA [Concomitant]
     Active Substance: UREA
  10. TICAGRELOR [Concomitant]
     Active Substance: TICAGRELOR
     Dosage: 60 MILLIGRAM, BID
     Dates: start: 20240814
  11. JARDIANCE [Concomitant]
     Active Substance: EMPAGLIFLOZIN
     Dosage: 10 MILLIGRAM, QD
     Dates: start: 20231115
  12. EZETIMIBE [Concomitant]
     Active Substance: EZETIMIBE
     Dosage: 10 MILLIGRAM, QD
     Dates: start: 20230831
  13. METFORMIN [Concomitant]
     Active Substance: METFORMIN HYDROCHLORIDE
     Dosage: 850 MILLIGRAM, BID
     Dates: start: 20240422
  14. ACETAMINOPHEN [Concomitant]
     Active Substance: ACETAMINOPHEN
  15. NITROLINGUAL [Concomitant]
     Active Substance: NITROGLYCERIN
  16. HYDROCORTISONE [Concomitant]
     Active Substance: HYDROCORTISONE

REACTIONS (3)
  - Rhabdomyolysis [Fatal]
  - Myopathy [Fatal]
  - Acute kidney injury [Fatal]

NARRATIVE: CASE EVENT DATE: 20250214
